FAERS Safety Report 17596433 (Version 2)
Quarter: 2020Q2

REPORT INFORMATION
  Report Type: Spontaneous
  Country: US (occurrence: US)
  Receive Date: 20200330
  Receipt Date: 20200602
  Transmission Date: 20200713
  Serious: No
  Sender: FDA-Public Use
  Company Number: US-MTPC-MTDA2020-0048547

PATIENT
  Sex: Male

DRUGS (1)
  1. RADICAVA [Suspect]
     Active Substance: EDARAVONE
     Indication: AMYOTROPHIC LATERAL SCLEROSIS
     Dosage: 10 DAYS INFUSED QD, 14 DAYS OFF
     Route: 065
     Dates: start: 201912

REACTIONS (1)
  - Drug ineffective [Unknown]
